FAERS Safety Report 9657444 (Version 1)
Quarter: 2013Q4

REPORT INFORMATION
  Report Type: Spontaneous
  Country: US (occurrence: US)
  Receive Date: 20131030
  Receipt Date: 20131030
  Transmission Date: 20140711
  Serious: No
  Sender: FDA-Public Use
  Company Number: US-PURDUE-USA-2011-0076771

PATIENT
  Age: 45 Year
  Sex: Female
  Weight: 83.9 kg

DRUGS (3)
  1. OXYCONTIN TABLETS [Suspect]
     Indication: NEURALGIA
     Dosage: 40 MG, TID
     Dates: start: 2009
  2. OXYCONTIN TABLETS [Suspect]
     Indication: POST LAMINECTOMY SYNDROME
  3. OXYCONTIN TABLETS [Suspect]
     Indication: SPINAL NERVE STIMULATOR IMPLANTATION

REACTIONS (2)
  - Overdose [Unknown]
  - Intentional drug misuse [Unknown]
